FAERS Safety Report 18799704 (Version 3)
Quarter: 2021Q2

REPORT INFORMATION
  Report Type: Spontaneous
  Country: US (occurrence: US)
  Receive Date: 20210128
  Receipt Date: 20210511
  Transmission Date: 20210717
  Serious: Yes (Other)
  Sender: FDA-Public Use
  Company Number: US-GILEAD-2021-0513359

PATIENT
  Age: 58 Year
  Sex: Male
  Weight: 90.7 kg

DRUGS (64)
  1. TRUVADA [Suspect]
     Active Substance: EMTRICITABINE\TENOFOVIR DISOPROXIL FUMARATE
     Indication: HIV INFECTION
     Dosage: UNK
     Route: 048
     Dates: start: 2004
  2. AMOXICLAV [Concomitant]
     Active Substance: AMOXICILLIN\CLAVULANATE POTASSIUM
  3. CIPROFLOXACIN. [Concomitant]
     Active Substance: CIPROFLOXACIN
  4. FINASTERIDE. [Concomitant]
     Active Substance: FINASTERIDE
  5. GAVILYTE ? C [Concomitant]
     Active Substance: POLYETHYLENE GLYCOL 3350\POTASSIUM CHLORIDE\SODIUM BICARBONATE\SODIUM CHLORIDE\SODIUM SULFATE
  6. LOPERAMIDE [Concomitant]
     Active Substance: LOPERAMIDE
  7. NEOMYCIN. [Concomitant]
     Active Substance: NEOMYCIN
  8. NEXIUM I.V. [Concomitant]
     Active Substance: ESOMEPRAZOLE SODIUM
  9. SYMBICORT [Concomitant]
     Active Substance: BUDESONIDE\FORMOTEROL FUMARATE DIHYDRATE
  10. TEMAZEPAM. [Concomitant]
     Active Substance: TEMAZEPAM
  11. CYCLOBENZAPRINE. [Concomitant]
     Active Substance: CYCLOBENZAPRINE
  12. DOXYCYCLINE. [Concomitant]
     Active Substance: DOXYCYCLINE
  13. MIDODRINE [Concomitant]
     Active Substance: MIDODRINE
  14. MIRTAZAPINE. [Concomitant]
     Active Substance: MIRTAZAPINE
  15. PROAIR [FLUTICASONE PROPIONATE] [Concomitant]
     Active Substance: FLUTICASONE PROPIONATE
  16. VIAGRA [Concomitant]
     Active Substance: SILDENAFIL CITRATE
  17. ALINIA [Concomitant]
     Active Substance: NITAZOXANIDE
  18. AMOXICILLIN. [Concomitant]
     Active Substance: AMOXICILLIN
  19. AZITHROMYCIN ANHYDROUS. [Concomitant]
     Active Substance: AZITHROMYCIN ANHYDROUS
  20. DEXAMETHASONE. [Concomitant]
     Active Substance: DEXAMETHASONE
  21. LIDOCAINE. [Concomitant]
     Active Substance: LIDOCAINE
  22. MELOXICAM. [Concomitant]
     Active Substance: MELOXICAM
  23. ONDANSETRON [Concomitant]
     Active Substance: ONDANSETRON
  24. PEG [MACROGOL] [Concomitant]
  25. INTELENCE [Concomitant]
     Active Substance: ETRAVIRINE
  26. ISENTRESS [Concomitant]
     Active Substance: RALTEGRAVIR POTASSIUM
  27. BENZONATATE. [Concomitant]
     Active Substance: BENZONATATE
  28. CEFPODOXIME [Concomitant]
     Active Substance: CEFPODOXIME
  29. FLUOXETINE [Concomitant]
     Active Substance: FLUOXETINE HYDROCHLORIDE
  30. LEVITRA [Concomitant]
     Active Substance: VARDENAFIL HYDROCHLORIDE
  31. LUNESTA [Concomitant]
     Active Substance: ESZOPICLONE
  32. SALICYLIC ACID. [Concomitant]
     Active Substance: SALICYLIC ACID
  33. TRUVADA [Suspect]
     Active Substance: EMTRICITABINE\TENOFOVIR DISOPROXIL FUMARATE
     Dosage: UNK
     Route: 048
     Dates: start: 2005, end: 20170627
  34. CHLORHEXIDINE [Concomitant]
     Active Substance: CHLORHEXIDINE
  35. DIAZEPAM. [Concomitant]
     Active Substance: DIAZEPAM
  36. FOLIC ACID. [Concomitant]
     Active Substance: FOLIC ACID
  37. VALACYCLOVIR [Concomitant]
     Active Substance: VALACYCLOVIR HYDROCHLORIDE
  38. VIIBRYD [Concomitant]
     Active Substance: VILAZODONE HYDROCHLORIDE
  39. IPRATROPIUM [Concomitant]
     Active Substance: IPRATROPIUM
  40. DESCOVY [Concomitant]
     Active Substance: EMTRICITABINE\TENOFOVIR ALAFENAMIDE FUMARATE
  41. SELZENTRY [Concomitant]
     Active Substance: MARAVIROC
  42. ABILIFY [Concomitant]
     Active Substance: ARIPIPRAZOLE
  43. CARISOPRODOL. [Concomitant]
     Active Substance: CARISOPRODOL
  44. COLCRYS [Concomitant]
     Active Substance: COLCHICINE
  45. DICYCLOMINE CO [Concomitant]
  46. FLUDROCORTISONE [Concomitant]
     Active Substance: FLUDROCORTISONE
  47. GABAPENTIN. [Concomitant]
     Active Substance: GABAPENTIN
  48. ITRACONAZOLE. [Concomitant]
     Active Substance: ITRACONAZOLE
  49. LEVOFLOXACIN. [Concomitant]
     Active Substance: LEVOFLOXACIN
  50. METHYLPREDNISOLONE. [Concomitant]
     Active Substance: METHYLPREDNISOLONE
  51. TRAZODONE [Concomitant]
     Active Substance: TRAZODONE HYDROCHLORIDE
  52. CEPHALEXIN AMEL [Concomitant]
     Active Substance: CEPHALEXIN
  53. DIPHENOXYLATE [Concomitant]
     Active Substance: DIPHENOXYLATE
  54. NORTRIPTYLINE [Concomitant]
     Active Substance: NORTRIPTYLINE
  55. OMEPRAZOLE. [Concomitant]
     Active Substance: OMEPRAZOLE
  56. AVELOX [Concomitant]
     Active Substance: MOXIFLOXACIN HYDROCHLORIDE
  57. BALOXAVIR MARBOXIL. [Concomitant]
     Active Substance: BALOXAVIR MARBOXIL
  58. GOLYTELY [Concomitant]
     Active Substance: POLYETHYLENE GLYCOL 3350\POTASSIUM CHLORIDE\SODIUM BICARBONATE\SODIUM CHLORIDE\SODIUM SULFATE
  59. METRONIDAZOLE. [Concomitant]
     Active Substance: METRONIDAZOLE
  60. NYSTATIN. [Concomitant]
     Active Substance: NYSTATIN
  61. PERMETHRIN. [Concomitant]
     Active Substance: PERMETHRIN
  62. PREDNISONE. [Concomitant]
     Active Substance: PREDNISONE
  63. SULFAMETHOXAZOLE [Concomitant]
     Active Substance: SULFAMETHOXAZOLE
  64. NITROFURANTOIN. [Concomitant]
     Active Substance: NITROFURANTOIN

REACTIONS (9)
  - Bone density decreased [Unknown]
  - Anxiety [Not Recovered/Not Resolved]
  - Chronic kidney disease [Not Recovered/Not Resolved]
  - Emotional distress [Not Recovered/Not Resolved]
  - Anhedonia [Not Recovered/Not Resolved]
  - Renal failure [Unknown]
  - Pain [Not Recovered/Not Resolved]
  - Hypertension [Not Recovered/Not Resolved]
  - Hyperkalaemia [Not Recovered/Not Resolved]

NARRATIVE: CASE EVENT DATE: 201301
